FAERS Safety Report 12503696 (Version 1)
Quarter: 2016Q2

REPORT INFORMATION
  Report Type: Spontaneous
  Country: SK (occurrence: SK)
  Receive Date: 20160628
  Receipt Date: 20160628
  Transmission Date: 20160815
  Serious: Yes (Other)
  Sender: FDA-Public Use
  Company Number: SK-TEVA-669828ISR

PATIENT
  Age: 35 Year
  Sex: Female

DRUGS (4)
  1. CICLOSPORIN [Suspect]
     Active Substance: CYCLOSPORINE
     Indication: GRAFT VERSUS HOST DISEASE
     Dates: start: 200802, end: 200807
  2. METHYLPREDNISOLONE. [Suspect]
     Active Substance: METHYLPREDNISOLONE
     Indication: GRAFT VERSUS HOST DISEASE
     Dates: start: 200808
  3. METHOTREXATE [Suspect]
     Active Substance: METHOTREXATE
     Indication: GRAFT VERSUS HOST DISEASE
     Dates: start: 200802, end: 200807
  4. CICLOSPORIN [Suspect]
     Active Substance: CYCLOSPORINE
     Dates: start: 200808, end: 201101

REACTIONS (4)
  - Asthma [Unknown]
  - Osteonecrosis [Not Recovered/Not Resolved]
  - Hypertension [Unknown]
  - Hypercholesterolaemia [Unknown]

NARRATIVE: CASE EVENT DATE: 2008
